FAERS Safety Report 4583365-X (Version None)
Quarter: 2005Q1

REPORT INFORMATION
  Report Type: 
  Country: None (occurrence: None)
  Receive Date: 20050125
  Receipt Date: 20040929
  Transmission Date: 20050727
  Serious: No
  Sender: FDA-Public Use
  Company Number: USA031151403

PATIENT
  Age: 81 Year
  Sex: Female
  Weight: 45 kg

DRUGS (5)
  1. FORTEO [Suspect]
     Indication: OSTEOPOROSIS
     Dosage: 20 UG DAY
     Dates: start: 20030701
  2. OXYGEN [Concomitant]
  3. FLUTICASONE W/SALMETEROL [Concomitant]
  4. PROVENTIL (SALBUTAMOL SULFATE) [Concomitant]
  5. ATROVENT [Concomitant]

REACTIONS (4)
  - ANAEMIA [None]
  - DYSGEUSIA [None]
  - OEDEMA PERIPHERAL [None]
  - WEIGHT DECREASED [None]
